FAERS Safety Report 6455387-5 (Version None)
Quarter: 2009Q4

REPORT INFORMATION
  Report Type: 
  Country: None (occurrence: None)
  Receive Date: 20091125
  Receipt Date: 20091119
  Transmission Date: 20100525
  Serious: Yes (Congenital Anomaly)
  Sender: FDA-Public Use
  Company Number: US-ABBOTT-09P-163-0590830-00

PATIENT
  Age: 1 Day
  Sex: Male
  Weight: 3.24 kg

DRUGS (1)
  1. KALETRA [Suspect]
     Indication: DRUG EXPOSURE DURING PREGNANCY
     Route: 064

REACTIONS (7)
  - AORTIC VALVE ATRESIA [None]
  - ATRIAL SEPTAL DEFECT [None]
  - DRUG EXPOSURE DURING PREGNANCY [None]
  - HEART DISEASE CONGENITAL [None]
  - HYPOPLASTIC LEFT HEART SYNDROME [None]
  - MITRAL VALVE ATRESIA [None]
  - UNIVENTRICULAR HEART [None]
